FAERS Safety Report 14140094 (Version 1)
Quarter: 2017Q4

REPORT INFORMATION
  Report Type: Spontaneous
  Country: US (occurrence: US)
  Receive Date: 20171030
  Receipt Date: 20171030
  Transmission Date: 20180321
  Serious: No
  Sender: FDA-Public Use
  Company Number: US-TEVA-800412USA

PATIENT
  Age: 8 Month
  Sex: Male

DRUGS (1)
  1. VALGANCICLOVIR HYDROCHLORIDE. [Suspect]
     Active Substance: VALGANCICLOVIR HYDROCHLORIDE
     Indication: CYTOMEGALOVIRUS INFECTION
     Dosage: 5 MILLIGRAM/MILLILITERS DAILY;
     Route: 048

REACTIONS (1)
  - White blood cell count decreased [Unknown]
